FAERS Safety Report 17872301 (Version 1)
Quarter: 2020Q2

REPORT INFORMATION
  Report Type: Spontaneous
  Country: US (occurrence: US)
  Receive Date: 20200608
  Receipt Date: 20200608
  Transmission Date: 20200714
  Serious: No
  Sender: FDA-Public Use
  Company Number: US-MERZ PHARMACEUTICALS GMBH-20-01467

PATIENT
  Age: 59 Year
  Sex: Female

DRUGS (1)
  1. ASCLERA [Suspect]
     Active Substance: POLIDOCANOL
     Indication: SCLEROTHERAPY
     Dosage: 5 VIALS
     Route: 042
     Dates: start: 20200109, end: 20200109

REACTIONS (1)
  - Wound [Not Recovered/Not Resolved]
